FAERS Safety Report 6723914-6 (Version None)
Quarter: 2010Q2

REPORT INFORMATION
  Report Type: 
  Country: None (occurrence: None)
  Receive Date: 20100513
  Receipt Date: 20100512
  Transmission Date: 20101027
  Serious: Yes (Other)
  Sender: FDA-Public Use
  Company Number: GB-RB-000834-10

PATIENT
  Sex: Female

DRUGS (3)
  1. SUBOXONE [Suspect]
     Route: 060
     Dates: start: 20091130, end: 20100104
  2. METHADONE [Suspect]
     Dosage: DOSING DETAILS UNKNOWN
     Route: 065
  3. TWINRIX [Concomitant]
     Indication: DRUG USE FOR UNKNOWN INDICATION
     Dosage: UNKNOWN DOSING DETAILS
     Route: 065
     Dates: start: 20091201, end: 20091201

REACTIONS (4)
  - BRAIN OEDEMA [None]
  - HEADACHE [None]
  - PAPILLOEDEMA [None]
  - VISION BLURRED [None]
